FAERS Safety Report 4717598-6 (Version None)
Quarter: 2005Q3

REPORT INFORMATION
  Report Type: 
  Country: None (occurrence: None)
  Receive Date: 20050712
  Receipt Date: 20050418
  Transmission Date: 20060218
  Serious: No
  Sender: FDA-Public Use
  Company Number: 2005S1000072

PATIENT
  Sex: Female
  Weight: 89 kg

DRUGS (10)
  1. CUBICIN [Suspect]
     Indication: WOUND INFECTION STAPHYLOCOCCAL
     Dosage: IV
     Route: 042
     Dates: start: 20040831, end: 20040907
  2. ARTHROTEC [Concomitant]
  3. LASIX [Concomitant]
  4. LOTREL [Concomitant]
  5. POTASSIUM CHLORIDE [Concomitant]
  6. PIOGLITAZONE HCL [Concomitant]
  7. LISINOPRIL [Concomitant]
  8. CYTOTEC [Concomitant]
  9. AMLODIPINE [Concomitant]
  10. LOPRESSOR [Concomitant]

REACTIONS (3)
  - ALANINE AMINOTRANSFERASE INCREASED [None]
  - ASPARTATE AMINOTRANSFERASE INCREASED [None]
  - BLOOD CREATINE PHOSPHOKINASE INCREASED [None]
